FAERS Safety Report 7335259-4 (Version None)
Quarter: 2011Q1

REPORT INFORMATION
  Report Type: 
  Country: None (occurrence: None)
  Receive Date: 20110307
  Receipt Date: 20110303
  Transmission Date: 20110831
  Serious: No
  Sender: FDA-Public Use
  Company Number: US-PFIZER INC-2011047499

PATIENT
  Sex: Female
  Weight: 63 kg

DRUGS (2)
  1. NORVASC [Suspect]
     Indication: HYPERTENSION
     Dosage: 10 MG, DAILY
     Route: 048
     Dates: start: 20030101
  2. ZYRTEC [Concomitant]
     Indication: HYPERSENSITIVITY
     Dosage: UNK

REACTIONS (6)
  - GINGIVAL SWELLING [None]
  - GINGIVAL RECESSION [None]
  - OEDEMA PERIPHERAL [None]
  - DENTAL PLAQUE [None]
  - DRY EYE [None]
  - ALOPECIA [None]
